FAERS Safety Report 22028296 (Version 1)
Quarter: 2023Q1

REPORT INFORMATION
  Report Type: Spontaneous
  Country: US (occurrence: None)
  Receive Date: 20230223
  Receipt Date: 20230223
  Transmission Date: 20230418
  Serious: No
  Sender: FDA-Public Use
  Company Number: US-ROCHE-3248078

PATIENT
  Sex: Male
  Weight: 28 kg

DRUGS (2)
  1. NUTROPIN [Suspect]
     Active Substance: SOMATROPIN
     Indication: Hypopituitarism
     Route: 058
     Dates: start: 20221006
  2. NUTROPIN [Suspect]
     Active Substance: SOMATROPIN

REACTIONS (7)
  - Injury [Unknown]
  - Affect lability [Unknown]
  - Headache [Unknown]
  - Injection site pain [Unknown]
  - Injection site swelling [Unknown]
  - Nausea [Unknown]
  - Anxiety [Unknown]

NARRATIVE: CASE EVENT DATE: 20221220
